FAERS Safety Report 12765292 (Version 3)
Quarter: 2016Q4

REPORT INFORMATION
  Report Type: Spontaneous
  Country: US (occurrence: US)
  Receive Date: 20160921
  Receipt Date: 20161019
  Transmission Date: 20170207
  Serious: No
  Sender: FDA-Public Use
  Company Number: US-PFIZER INC-2016438558

PATIENT
  Age: 81 Year
  Sex: Female

DRUGS (4)
  1. LYRICA [Suspect]
     Active Substance: PREGABALIN
     Indication: NEUROPATHY PERIPHERAL
     Dosage: 75 MG, UNK, (75MG FOR 2 DAYS)
  2. LYRICA [Suspect]
     Active Substance: PREGABALIN
     Dosage: 70 MG, UNK
  3. LYRICA [Suspect]
     Active Substance: PREGABALIN
     Indication: PAIN
     Dosage: 50 MG, UNK, (50MG TAKEN FOR YEARS)
  4. AMBIEN [Concomitant]
     Active Substance: ZOLPIDEM TARTRATE
     Dosage: 5 MG, 1X/DAY (TAKEN WITH 50 MG LYRICA AT BEDTIME)

REACTIONS (5)
  - Condition aggravated [Unknown]
  - Fatigue [Unknown]
  - Somnolence [Recovered/Resolved]
  - Neuropathy peripheral [Unknown]
  - Depression [Recovered/Resolved]

NARRATIVE: CASE EVENT DATE: 201604
